FAERS Safety Report 18604648 (Version 1)
Quarter: 2020Q4

REPORT INFORMATION
  Report Type: Spontaneous
  Country: US (occurrence: US)
  Receive Date: 20201211
  Receipt Date: 20201211
  Transmission Date: 20210114
  Serious: Yes (Hospitalization)
  Sender: FDA-Public Use
  Company Number: US-PACIRA-202000531

PATIENT

DRUGS (12)
  1. EXPAREL [Suspect]
     Active Substance: BUPIVACAINE
     Indication: POSTOPERATIVE ANALGESIA
     Dosage: 20ML (266MG) SUSPENDED WITH 30ML 0.25% BUPIVACAINE AND 100ML SALINE
     Route: 050
  2. 0.25% BUPIVACAINE [Suspect]
     Active Substance: BUPIVACAINE
     Indication: ANALGESIC THERAPY
     Dosage: 30ML SUSPENDED WITH 20ML LIPOSOMAL BUPIVACAINE AND 100ML SALINE
     Route: 050
  3. MAGNESIUM [Concomitant]
     Active Substance: MAGNESIUM
     Indication: INTRAOPERATIVE CARE
     Dosage: NOT PROVIDED
     Route: 042
  4. ACETAMINOPHEN. [Concomitant]
     Active Substance: ACETAMINOPHEN
     Indication: POSTOPERATIVE ANALGESIA
     Dosage: NOT PROVIDED
     Route: 042
  5. HEPARIN [Concomitant]
     Active Substance: HEPARIN SODIUM
     Indication: INTRAOPERATIVE CARE
     Dosage: NOT PROVIDED
     Route: 058
  6. ACETAMINOPHEN. [Concomitant]
     Active Substance: ACETAMINOPHEN
     Indication: POSTOPERATIVE ANALGESIA
     Dosage: NOT PROVIDED
     Route: 048
  7. SALINE [Concomitant]
     Active Substance: SODIUM CHLORIDE
     Indication: ANALGESIC THERAPY
     Dosage: 100ML SUSPENDED WITH 20ML LIPOSOMAL BUPIVACAINE AND 30ML BUPIVACAINE
     Route: 050
  8. ANTIBIOTICS [Concomitant]
     Active Substance: UNSPECIFIED INGREDIENT
     Indication: ANTIBIOTIC PROPHYLAXIS
     Dosage: NOT PROVIDED
     Route: 065
  9. KETOROLAC [Concomitant]
     Active Substance: KETOROLAC TROMETHAMINE
     Indication: POSTOPERATIVE ANALGESIA
     Dosage: NOT PROVIDED
     Route: 065
  10. ALVIMOPAN [Concomitant]
     Active Substance: ALVIMOPAN
     Indication: PRODUCT USED FOR UNKNOWN INDICATION
     Dosage: NOT PROVIDED
     Route: 065
  11. GABAPENTIN. [Concomitant]
     Active Substance: GABAPENTIN
     Indication: POSTOPERATIVE ANALGESIA
     Dosage: NOT PROVIDED
     Route: 065
  12. IBUPROFEN. [Concomitant]
     Active Substance: IBUPROFEN
     Indication: POSTOPERATIVE ANALGESIA
     Dosage: NOT PROVIDED
     Route: 065

REACTIONS (1)
  - Hospitalisation [Unknown]
